FAERS Safety Report 17794033 (Version 1)
Quarter: 2020Q2

REPORT INFORMATION
  Report Type: Spontaneous
  Country: GB (occurrence: GB)
  Receive Date: 20200515
  Receipt Date: 20200515
  Transmission Date: 20200714
  Serious: Yes (Other)
  Sender: FDA-Public Use
  Company Number: GB-JNJFOC-20200507545

PATIENT

DRUGS (2)
  1. TOPAMAX [Suspect]
     Active Substance: TOPIRAMATE
     Dosage: BLUE AND PURPLE PACKAGING?SN: 131181262529
     Route: 048
  2. TOPAMAX [Suspect]
     Active Substance: TOPIRAMATE
     Indication: PRODUCT USED FOR UNKNOWN INDICATION
     Dosage: SN: 190023357873?YELLOW AND BLUE PACKAGING
     Route: 048

REACTIONS (2)
  - Adverse drug reaction [Unknown]
  - Seizure [Unknown]
